FAERS Safety Report 17371218 (Version 2)
Quarter: 2020Q1

REPORT INFORMATION
  Report Type: Spontaneous
  Country: JP (occurrence: JP)
  Receive Date: 20200205
  Receipt Date: 20200220
  Transmission Date: 20200409
  Serious: Yes (Other)
  Sender: FDA-Public Use
  Company Number: JP-RECORDATI RARE DISEASES-2079855

PATIENT
  Age: 11 Day
  Sex: Male

DRUGS (5)
  1. LEVOCARNITINE. [Concomitant]
     Active Substance: LEVOCARNITINE
     Dates: start: 20200110, end: 20200122
  2. SODIUM BENZOATE [Concomitant]
     Active Substance: SODIUM BENZOATE
     Dates: start: 20200110, end: 20200122
  3. CARBAGLU [Suspect]
     Active Substance: CARGLUMIC ACID
     Route: 050
     Dates: start: 20200110, end: 20200114
  4. L ARGININE [Concomitant]
     Active Substance: ARGININE
     Dates: start: 20200110, end: 20200122
  5. CARBAGLU [Suspect]
     Active Substance: CARGLUMIC ACID
     Indication: HYPERAMMONAEMIA
     Route: 050
     Dates: start: 20200115, end: 20200120

REACTIONS (1)
  - Blood creatine phosphokinase increased [Recovered/Resolved]

NARRATIVE: CASE EVENT DATE: 20200116
